FAERS Safety Report 9557459 (Version 1)
Quarter: 2013Q3

REPORT INFORMATION
  Report Type: Spontaneous
  Country: US (occurrence: US)
  Receive Date: 20130926
  Receipt Date: 20130926
  Transmission Date: 20140515
  Serious: No
  Sender: FDA-Public Use
  Company Number: US-B.I. PHARMACEUTICALS,INC./RIDGEFIELD-2013-BI-28946BP

PATIENT
  Age: 63 Year
  Sex: Female
  Weight: 41.73 kg

DRUGS (1)
  1. GILOTRIF [Suspect]
     Indication: HEAD AND NECK CANCER
     Dosage: 40 MG
     Route: 048
     Dates: start: 20130911

REACTIONS (5)
  - Wound secretion [Recovered/Resolved]
  - Wound secretion [Unknown]
  - Diarrhoea [Unknown]
  - Rash [Unknown]
  - Off label use [Unknown]
